FAERS Safety Report 6018906-9 (Version None)
Quarter: 2008Q4

REPORT INFORMATION
  Report Type: 
  Country: None (occurrence: None)
  Receive Date: 20081221
  Receipt Date: 20081221
  Transmission Date: 20090506
  Serious: No
  Sender: FDA-Public Use
  Company Number: None

PATIENT
  Sex: Female
  Weight: 54.8 kg

DRUGS (2)
  1. TAXOTERE [Suspect]
     Dosage: 4.7 MG
     Dates: end: 20081114
  2. CARBOPLATIN [Suspect]
     Dosage: 570 MG
     Dates: end: 20081114

REACTIONS (3)
  - BACK PAIN [None]
  - HYPERSENSITIVITY [None]
  - INFUSION RELATED REACTION [None]
